FAERS Safety Report 8839422 (Version 2)
Quarter: 2012Q4

REPORT INFORMATION
  Report Type: 
  Country: US (occurrence: US)
  Receive Date: 20121015
  Receipt Date: 20121227
  Transmission Date: 20130627
  Serious: Yes (Hospitalization)
  Sender: FDA-Public Use
  Company Number: US-BAYER-2012-105072

PATIENT
  Age: 27 Year
  Sex: Female
  Weight: 70.3 kg

DRUGS (13)
  1. OCELLA [Suspect]
     Indication: ACNE
     Dosage: UNK
     Dates: start: 2008, end: 2010
  2. OCELLA [Suspect]
     Indication: PREMENSTRUAL SYNDROME
  3. YASMIN [Suspect]
     Indication: ACNE
  4. YASMIN [Suspect]
     Indication: PREMENSTRUAL SYNDROME
  5. PROZAC [Concomitant]
     Indication: DEPRESSION
     Dosage: 10 mg, daily
     Dates: start: 2009, end: 2010
  6. PROZAC [Concomitant]
     Indication: ANXIETY
  7. ELMIRON [Concomitant]
     Dosage: 100 mg, BID
  8. FLONASE [Concomitant]
     Dosage: 50 ng, UNK
  9. CLARITIN [Concomitant]
     Dosage: 10 mg, UNK
  10. BACTRIM DS [Concomitant]
     Dosage: One pill BID for 10 days
  11. ATIVAN [Concomitant]
     Indication: ANXIETY
  12. LEVAQUIN [Concomitant]
  13. FLUOXETINE [Concomitant]

REACTIONS (8)
  - Pulmonary embolism [None]
  - Pleural effusion [None]
  - Injury [None]
  - Dyspnoea [None]
  - Pleuritic pain [None]
  - Mental disorder [None]
  - Fear [None]
  - Pain [None]
